FAERS Safety Report 8280799-7 (Version None)
Quarter: 2012Q2

REPORT INFORMATION
  Report Type: 
  Country: None (occurrence: None)
  Receive Date: 20120412
  Receipt Date: 20120405
  Transmission Date: 20120825
  Serious: Yes (Other)
  Sender: FDA-Public Use
  Company Number: BR-ABBOTT-12P-020-0922356-00

PATIENT
  Sex: Female
  Weight: 63 kg

DRUGS (8)
  1. CELECOXIB [Concomitant]
     Indication: ARTHRITIS
     Route: 048
  2. HUMIRA [Suspect]
     Indication: RHEUMATOID ARTHRITIS
     Route: 058
     Dates: start: 20101201, end: 20120225
  3. LEFLUNOMIDE [Concomitant]
     Indication: ARTHRITIS
     Route: 048
  4. GALVUS MET [Concomitant]
     Indication: DIABETES MELLITUS
     Dosage: 50 MG + 500 MG
     Route: 048
     Dates: start: 20090101
  5. AMOXICILLIN [Suspect]
     Indication: PYREXIA
  6. DEFLAZACORT [Concomitant]
     Indication: ARTHRITIS
     Dosage: IN THE MORNING
     Route: 048
  7. LOSARTAN POTASSIUM [Concomitant]
     Indication: BLOOD PRESSURE
     Route: 048
     Dates: start: 20090101
  8. TENORETIC 100 [Concomitant]
     Indication: BLOOD PRESSURE
     Route: 048
     Dates: start: 20090101

REACTIONS (7)
  - OROPHARYNGEAL PAIN [None]
  - WEIGHT DECREASED [None]
  - DENTAL IMPLANTATION [None]
  - PYREXIA [None]
  - UNEVALUABLE EVENT [None]
  - ARTHRITIS [None]
  - RASH GENERALISED [None]
